FAERS Safety Report 4823534-4 (Version None)
Quarter: 2005Q4

REPORT INFORMATION
  Report Type: 
  Country: None (occurrence: None)
  Receive Date: 20051107
  Receipt Date: 20051026
  Transmission Date: 20060501
  Serious: Yes (Death)
  Sender: FDA-Public Use
  Company Number: 2005090700

PATIENT
  Age: 78 Year
  Sex: Male
  Weight: 87 kg

DRUGS (13)
  1. LYRICA [Suspect]
     Indication: POST HERPETIC NEURALGIA
     Dosage: 600 MG (30 MG, 2 IN 1 D), ORAL
     Route: 048
     Dates: start: 20050525
  2. NITRAZEPAM [Concomitant]
  3. DIAZEPAM [Concomitant]
  4. DAKTACORT (HYDROCORTISONE, MICONAZOLE NITRATE) [Concomitant]
  5. BISACODYL (BISACODYL) [Concomitant]
  6. LACTULOSE [Concomitant]
  7. AMITRIPTYLINE HCL [Concomitant]
  8. DICLOFENAC SODIUM [Concomitant]
  9. TAMSULOSIN HCL [Concomitant]
  10. FLECAINIDE ACETATE [Concomitant]
  11. PARACETAMOL (PARACETAMOL) [Concomitant]
  12. HYPROMELLOSE (HYPROMELLOSE) [Concomitant]
  13. FYBOGEL (ISPAGHULA) [Concomitant]

REACTIONS (10)
  - ACUTE LEFT VENTRICULAR FAILURE [None]
  - ARTERIOSCLEROSIS CORONARY ARTERY [None]
  - BALANCE DISORDER [None]
  - BENIGN PROSTATIC HYPERPLASIA [None]
  - CHOLELITHIASIS [None]
  - CORONARY ARTERY OCCLUSION [None]
  - DYSURIA [None]
  - MYOCARDIAL ISCHAEMIA [None]
  - OVERDOSE [None]
  - SUDDEN DEATH [None]
